FAERS Safety Report 15720394 (Version 2)
Quarter: 2020Q2

REPORT INFORMATION
  Report Type: Spontaneous
  Country: FR (occurrence: FR)
  Receive Date: 20181213
  Receipt Date: 20200507
  Transmission Date: 20200713
  Serious: Yes (Hospitalization)
  Sender: FDA-Public Use
  Company Number: FR-FERRINGPH-2018FE07148

PATIENT
  Age: 69 Year
  Sex: Male

DRUGS (1)
  1. FIRMAGON [Suspect]
     Active Substance: DEGARELIX ACETATE
     Indication: PRODUCT USED FOR UNKNOWN INDICATION
     Dosage: UNK
     Route: 058
     Dates: start: 201805

REACTIONS (1)
  - Pemphigoid [Not Recovered/Not Resolved]

NARRATIVE: CASE EVENT DATE: 201807
